FAERS Safety Report 7207624-7 (Version None)
Quarter: 2011Q1

REPORT INFORMATION
  Report Type: 
  Country: None (occurrence: None)
  Receive Date: 20110103
  Receipt Date: 20101223
  Transmission Date: 20110831
  Serious: Yes (Hospitalization)
  Sender: FDA-Public Use
  Company Number: GB-ASTRAZENECA-2010SE60811

PATIENT
  Age: 251 Month
  Sex: Female

DRUGS (3)
  1. SALBUTAMOL [Concomitant]
  2. SYMBICORT [Suspect]
     Dosage: 200/6 4 PUFFS TWICE DAILY
     Route: 055
     Dates: start: 20101201
  3. SYMBICORT [Suspect]
     Indication: ASTHMA
     Dosage: 200/6 2 PUFFS TWICE DAILY
     Route: 055
     Dates: end: 20101201

REACTIONS (2)
  - DRUG EXPOSURE DURING PREGNANCY [None]
  - RESPIRATORY FAILURE [None]
